FAERS Safety Report 12969803 (Version 2)
Quarter: 2016Q4

REPORT INFORMATION
  Report Type: Report from Study
  Country: BR (occurrence: BR)
  Receive Date: 20161123
  Receipt Date: 20161123
  Transmission Date: 20170207
  Serious: Yes (Hospitalization, Other)
  Sender: FDA-Public Use
  Company Number: BR-BAYER-2016-222512

PATIENT
  Age: 43 Year
  Sex: Male

DRUGS (6)
  1. AMLODIPINE BESYLATE. [Concomitant]
     Active Substance: AMLODIPINE BESYLATE
     Indication: HYPERTENSION
     Dosage: 1 DF, QD
     Route: 048
     Dates: start: 201301
  2. BACLOFEN. [Concomitant]
     Active Substance: BACLOFEN
     Indication: MUSCLE SPASMS
     Dosage: 1 DF, BID
     Route: 048
     Dates: start: 2007
  3. TYLEX [CODEINE PHOSPHATE,PARACETAMOL] [Concomitant]
     Indication: SPINAL PAIN
     Dosage: 1 DF, PRN
     Route: 048
     Dates: start: 2007
  4. LOSARTAN. [Concomitant]
     Active Substance: LOSARTAN
     Indication: HYPERTENSION
     Dosage: 1 DF, QD
     Route: 048
     Dates: start: 201301
  5. BETAFERON [Suspect]
     Active Substance: INTERFERON BETA-1B
     Indication: MULTIPLE SCLEROSIS
     Dosage: 1 DF, QOD
     Route: 058
     Dates: start: 20070205
  6. TYLEX [CODEINE PHOSPHATE,PARACETAMOL] [Concomitant]
     Indication: GAIT DISTURBANCE

REACTIONS (7)
  - Multiple sclerosis relapse [Recovered/Resolved]
  - Visual impairment [Recovered/Resolved]
  - Product use issue [None]
  - Gait disturbance [Not Recovered/Not Resolved]
  - Optic nerve injury [Recovered/Resolved]
  - Urinary tract infection [Recovered/Resolved]
  - Muscular weakness [None]

NARRATIVE: CASE EVENT DATE: 20070205
